FAERS Safety Report 9835901 (Version 1)
Quarter: 2014Q1

REPORT INFORMATION
  Report Type: Report from Study
  Country: US (occurrence: US)
  Receive Date: 20140122
  Receipt Date: 20140122
  Transmission Date: 20141002
  Serious: Yes (Death)
  Sender: FDA-Public Use
  Company Number: US-PFIZER INC-2014018232

PATIENT
  Age: 54 Year
  Sex: Male

DRUGS (5)
  1. AMLODIPINE BESILATE [Suspect]
     Dosage: UNK
  2. QUETIAPINE FUMARATE [Suspect]
     Dosage: UNK
  3. LISINOPRIL [Suspect]
     Dosage: UNK
  4. ACETAMINOPHEN [Suspect]
     Dosage: UNK
  5. BUPROPION [Suspect]
     Dosage: UNK

REACTIONS (1)
  - Toxicity to various agents [Fatal]
